FAERS Safety Report 10591691 (Version 3)
Quarter: 2014Q4

REPORT INFORMATION
  Report Type: Other
  Country: IT (occurrence: IT)
  Receive Date: 20141118
  Receipt Date: 20141123
  Transmission Date: 20150529
  Serious: Yes (Other)
  Sender: FDA-Public Use
  Company Number: IT-MYLANLABS-2014M1009739

PATIENT

DRUGS (2)
  1. CLARITHROMYCIN. [Suspect]
     Active Substance: CLARITHROMYCIN
     Indication: ANTIBIOTIC THERAPY
     Dosage: 1 DF DAILY
     Route: 048
     Dates: start: 20141009, end: 20141013
  2. COUMADIN [Interacting]
     Active Substance: WARFARIN SODIUM
     Indication: THROMBOSIS PROPHYLAXIS
     Dosage: 5 MG DAILY
     Route: 048

REACTIONS (2)
  - Haemoptysis [Unknown]
  - Drug interaction [Unknown]

NARRATIVE: CASE EVENT DATE: 201410
